FAERS Safety Report 13430325 (Version 1)
Quarter: 2017Q2

REPORT INFORMATION
  Report Type: Report from Study
  Country: ES (occurrence: ES)
  Receive Date: 20170412
  Receipt Date: 20170412
  Transmission Date: 20170912
  Serious: Yes (Hospitalization)
  Sender: FDA-Public Use
  Company Number: ES-JNJFOC-20160602594

PATIENT
  Age: 69 Year
  Sex: Female
  Weight: 77 kg

DRUGS (14)
  1. CARDURAN NEO [Concomitant]
     Active Substance: DOXAZOSIN MESYLATE
     Route: 065
  2. SYRON [Concomitant]
     Dosage: 80 (UNITS UNSPECIFIED)
     Route: 065
  3. ATORVASTATIN [Concomitant]
     Active Substance: ATORVASTATIN
     Route: 065
  4. PLACEBO [Suspect]
     Route: 048
  5. JANUMET [Concomitant]
     Dosage: 50/1000 (UNITS UNSPECIFIED)
     Route: 065
  6. OPENVAS (OLMESARTAN MEDOXOMIL) [Concomitant]
     Active Substance: OLMESARTAN MEDOXOMIL
     Route: 065
  7. FOLI-DOCE [Concomitant]
     Active Substance: CYANOCOBALAMIN\FOLIC ACID
     Dosage: 400/2 UNITS UNSPECIFIED
     Route: 065
  8. INSULIN BASAL [Concomitant]
     Active Substance: INSULIN NOS
     Indication: HYPERGLYCAEMIA
     Route: 065
  9. OMEPRAZOLE [Concomitant]
     Route: 065
  10. TROMALYT [Concomitant]
     Active Substance: ASPIRIN
     Dosage: 150 (UNITS UNSPECIFIED)
     Route: 065
  11. METFORMIN [Concomitant]
     Indication: HYPERGLYCAEMIA
     Route: 065
  12. DIAMICRON [Concomitant]
     Active Substance: GLICLAZIDE
     Route: 065
  13. SUTRIL NEO [Concomitant]
     Dosage: 10(UNITS UNSPECIFIED)
     Route: 065
  14. BARNIX [Concomitant]
     Route: 065

REACTIONS (1)
  - Cholecystitis [Recovered/Resolved]

NARRATIVE: CASE EVENT DATE: 20160111
